FAERS Safety Report 7072259-6 (Version None)
Quarter: 2010Q4

REPORT INFORMATION
  Report Type: 
  Country: None (occurrence: None)
  Receive Date: 20101028
  Receipt Date: 20101028
  Transmission Date: 20110411
  Serious: Yes (Hospitalization)
  Sender: FDA-Public Use
  Company Number: None

PATIENT
  Age: 67 Year
  Sex: Female
  Weight: 75 kg

DRUGS (13)
  1. VIDAZA [Suspect]
     Indication: COLON CANCER STAGE IV
     Dosage: 150MG DAYS 1-4 AND 14-17 SQ
     Route: 058
     Dates: start: 20100824, end: 20101021
  2. TARCEVA [Suspect]
     Indication: COLON CANCER STAGE IV
     Dosage: 150MG DAYS 1-28 PO
     Route: 048
     Dates: start: 20100824, end: 20101022
  3. MECLIZINE [Concomitant]
  4. DOXYCYCLINE HYCLATE [Concomitant]
  5. IMODIUM A-D [Concomitant]
  6. OXYCODONE HCL [Concomitant]
  7. LORAZEPAM [Concomitant]
  8. LISINOPRIL [Concomitant]
  9. PIAGLITAZONE [Concomitant]
  10. GLIPIZIDE [Concomitant]
  11. METFORMIN [Concomitant]
  12. METFORMIN [Concomitant]
  13. PYRIDOXINE HCL [Concomitant]

REACTIONS (5)
  - DECREASED APPETITE [None]
  - DIARRHOEA [None]
  - ILEUS [None]
  - INCONTINENCE [None]
  - SMALL INTESTINAL OBSTRUCTION [None]
